FAERS Safety Report 25521519 (Version 4)
Quarter: 2025Q4

REPORT INFORMATION
  Report Type: Spontaneous
  Country: US (occurrence: US)
  Receive Date: 20250706
  Receipt Date: 20251103
  Transmission Date: 20260117
  Serious: No
  Sender: SANOFI AVENTIS
  Company Number: US-SA-2025SA189162

PATIENT
  Age: 7 Year
  Sex: Male

DRUGS (2)
  1. DUPIXENT [Suspect]
     Active Substance: DUPILUMAB
     Indication: Dermatitis allergic
     Dosage: 300 MG, QOW
     Dates: start: 202504, end: 20250817
  2. DUPIXENT [Suspect]
     Active Substance: DUPILUMAB
     Indication: Eczema
     Dosage: 300 MG, Q4W
     Route: 058
     Dates: start: 202504

REACTIONS (5)
  - Abdominal pain upper [Unknown]
  - Injection site pain [Unknown]
  - Eczema [Unknown]
  - Drug dose omission by device [Unknown]
  - Device defective [Unknown]

NARRATIVE: CASE EVENT DATE: 20250101
